FAERS Safety Report 8433906-7 (Version None)
Quarter: 2012Q2

REPORT INFORMATION
  Report Type: 
  Country: None (occurrence: None)
  Receive Date: 20120613
  Receipt Date: 20120605
  Transmission Date: 20120825
  Serious: Yes (Hospitalization, Other)
  Sender: FDA-Public Use
  Company Number: US-US-EMD SERONO, INC.-7138290

PATIENT
  Sex: Female
  Weight: 108 kg

DRUGS (3)
  1. LYRICA [Concomitant]
     Indication: MUSCLE SPASTICITY
     Dates: end: 20120605
  2. HUMALOG [Concomitant]
     Indication: DIABETES MELLITUS
     Dates: start: 20080101
  3. REBIF [Suspect]
     Indication: MULTIPLE SCLEROSIS
     Route: 058
     Dates: start: 20111201

REACTIONS (6)
  - URINARY TRACT INFECTION [None]
  - TREMOR [None]
  - AMMONIA INCREASED [None]
  - WHITE BLOOD CELL COUNT DECREASED [None]
  - ALTERED STATE OF CONSCIOUSNESS [None]
  - WEIGHT INCREASED [None]
